FAERS Safety Report 6405070-7 (Version None)
Quarter: 2009Q4

REPORT INFORMATION
  Report Type: 
  Country: None (occurrence: None)
  Receive Date: 20091019
  Receipt Date: 20091008
  Transmission Date: 20100525
  Serious: Yes (Hospitalization)
  Sender: FDA-Public Use
  Company Number: US-ASTRAZENECA-2009SE18944

PATIENT
  Age: 16469 Day
  Sex: Male

DRUGS (1)
  1. SEROQUEL [Suspect]
     Dosage: 1/3 TABLET AT A TIME
     Route: 048

REACTIONS (4)
  - ALCOHOL ABUSE [None]
  - DRUG WITHDRAWAL SYNDROME [None]
  - NAUSEA [None]
  - RETCHING [None]
